FAERS Safety Report 20564195 (Version 2)
Quarter: 2022Q1

REPORT INFORMATION
  Report Type: Spontaneous
  Country: US (occurrence: US)
  Receive Date: 20220308
  Receipt Date: 20220314
  Transmission Date: 20220424
  Serious: No
  Sender: FDA-Public Use
  Company Number: US-LUPIN PHARMACEUTICALS INC.-2022-02681

PATIENT
  Sex: Male
  Weight: 18.141 kg

DRUGS (2)
  1. GAVILAX [Suspect]
     Active Substance: POLYETHYLENE GLYCOL 3350
     Indication: Constipation
     Dosage: UNK, 17 GRAM AT BED TIME; QD (1 TIMES PER DAY)
     Route: 065
     Dates: start: 201501, end: 20220121
  2. LEVOXYL [Concomitant]
     Active Substance: LEVOTHYROXINE SODIUM
     Indication: Product used for unknown indication
     Dosage: 25 MCG, QD (ONCE A DAY)
     Route: 065

REACTIONS (2)
  - Therapeutic response unexpected [Unknown]
  - Product prescribing error [Unknown]
